FAERS Safety Report 8134384-8 (Version None)
Quarter: 2012Q1

REPORT INFORMATION
  Report Type: 
  Country: None (occurrence: None)
  Receive Date: 20120103
  Receipt Date: 20111110
  Transmission Date: 20120608
  Serious: No
  Sender: FDA-Public Use
  Company Number: AE-2011-003272

PATIENT
  Age: 62 Year
  Sex: Female
  Weight: 72.5755 kg

DRUGS (3)
  1. RIBAVIRIN [Concomitant]
  2. PEG-INTRON [Concomitant]
  3. INCIVEK [Suspect]
     Dosage: 2250 MG (750 MG, EVERY 7-9 HOURS)
     Dates: start: 20111010

REACTIONS (1)
  - MEDICATION ERROR [None]
